FAERS Safety Report 11089717 (Version 4)
Quarter: 2015Q3

REPORT INFORMATION
  Report Type: Report from Study
  Country: US (occurrence: US)
  Receive Date: 20150505
  Receipt Date: 20150728
  Transmission Date: 20151125
  Serious: Yes (Other)
  Sender: FDA-Public Use
  Company Number: US-TEVA-559944USA

PATIENT
  Age: 29 Year
  Sex: Female

DRUGS (13)
  1. ZITHROMAX [Concomitant]
     Active Substance: AZITHROMYCIN DIHYDRATE
     Dates: start: 20150302, end: 20150307
  2. DERMOGRASS [Concomitant]
     Dates: start: 20150201
  3. BETACAROTENE [Concomitant]
     Active Substance: .BETA.-CAROTENE
     Dates: start: 2014
  4. PLAN B ONE-STEP [Suspect]
     Active Substance: LEVONORGESTREL
     Indication: CONTRACEPTION
     Dosage: DOSE AND FREQUENCY NOT PROVIDED
  5. FESOY [Concomitant]
     Dates: start: 2014
  6. VITAMIN B COMPLEX [Concomitant]
     Active Substance: CYANOCOBALAMIN\DEXPANTHENOL\NIACINAMIDE\PYRIDOXINE HYDROCHLORIDE\RIBOFLAVIN 5^-PHOSPHATE SODIUM\THIAMINE HYDROCHLORIDE\VITAMIN B COMPLEX
     Dates: start: 2014
  7. NAPROXEN. [Concomitant]
     Active Substance: NAPROXEN
  8. VENTOLIN [Concomitant]
     Active Substance: ALBUTEROL SULFATE
     Dates: start: 2008
  9. MULTIVITAMIN [Concomitant]
     Active Substance: VITAMINS
     Dates: start: 2012
  10. VITAMIN C [Concomitant]
     Active Substance: ASCORBIC ACID
     Dates: start: 2014
  11. CLARAVIS [Suspect]
     Active Substance: ISOTRETINOIN
     Indication: PRODUCT USED FOR UNKNOWN INDICATION
     Dosage: 60 MILLIGRAM DAILY;
     Dates: start: 20141224, end: 20150420
  12. CIPRO [Concomitant]
     Active Substance: CIPROFLOXACIN HYDROCHLORIDE
     Dates: start: 20150215, end: 20150218
  13. ATENOLOL. [Concomitant]
     Active Substance: ATENOLOL
     Dates: start: 20150316

REACTIONS (2)
  - Abortion spontaneous [Recovered/Resolved]
  - Unintended pregnancy [Unknown]

NARRATIVE: CASE EVENT DATE: 20150316
